FAERS Safety Report 12975265 (Version 1)
Quarter: 2016Q4

REPORT INFORMATION
  Report Type: Spontaneous
  Country: US (occurrence: US)
  Receive Date: 20161123
  Receipt Date: 20161123
  Transmission Date: 20170207
  Serious: Yes (Hospitalization)
  Sender: FDA-Public Use
  Company Number: None

PATIENT
  Age: 77 Year
  Sex: Male
  Weight: 77 kg

DRUGS (16)
  1. TESTOSTERONE (ANDROGEL) [Concomitant]
  2. CYMBALTA [Suspect]
     Active Substance: DULOXETINE HYDROCHLORIDE
     Indication: NEUROPATHY PERIPHERAL
     Route: 048
     Dates: start: 20160713, end: 20160717
  3. DAPSONE. [Concomitant]
     Active Substance: DAPSONE
  4. FLONASE [Concomitant]
     Active Substance: FLUTICASONE PROPIONATE
  5. LIRAGLUTIDE [Concomitant]
     Active Substance: LIRAGLUTIDE
  6. GLUCAGEN [Concomitant]
     Active Substance: GLUCAGON HYDROCHLORIDE
  7. BACLOFEN. [Concomitant]
     Active Substance: BACLOFEN
  8. MAGNESIUM [Concomitant]
     Active Substance: MAGNESIUM
  9. PREDNISONE. [Concomitant]
     Active Substance: PREDNISONE
  10. SIMVASTATIN. [Concomitant]
     Active Substance: SIMVASTATIN
  11. DULOXETINE. [Concomitant]
     Active Substance: DULOXETINE
  12. ERTYTHROMYCIN [Concomitant]
  13. RANITIDINE. [Concomitant]
     Active Substance: RANITIDINE
  14. NOVOLOG [Concomitant]
     Active Substance: INSULIN ASPART
  15. SIMETHICONE (DIMETHICONE) [Concomitant]
     Active Substance: DIMETHICONE
  16. SINUS RINSE [Concomitant]
     Active Substance: SODIUM BICARBONATE\SODIUM CHLORIDE

REACTIONS (13)
  - Hypotension [None]
  - Musculoskeletal stiffness [None]
  - Seizure like phenomena [None]
  - Electroencephalogram abnormal [None]
  - Hyponatraemia [None]
  - Hypoxia [None]
  - Somnolence [None]
  - Tremor [None]
  - Unresponsive to stimuli [None]
  - Eye movement disorder [None]
  - Apnoea [None]
  - Hypotonia [None]
  - Urinary incontinence [None]

NARRATIVE: CASE EVENT DATE: 20160717
